FAERS Safety Report 20347909 (Version 1)
Quarter: 2022Q1

REPORT INFORMATION
  Report Type: Spontaneous
  Country: US (occurrence: US)
  Receive Date: 20220118
  Receipt Date: 20220118
  Transmission Date: 20220424
  Serious: No
  Sender: FDA-Public Use
  Company Number: US-JNJFOC-20220100623

PATIENT
  Age: 4 Decade

DRUGS (1)
  1. PEPCID AC [Suspect]
     Active Substance: FAMOTIDINE
     Indication: Product used for unknown indication
     Dosage: TRIED THIS TWICE. ONCE BEFORE LUNCH, THE SECOND AFTER DINNER (BEFORE BED)
     Route: 065

REACTIONS (5)
  - Chest pain [Unknown]
  - Dyspnoea [Unknown]
  - Nausea [Unknown]
  - Gastrointestinal sounds abnormal [Recovered/Resolved]
  - Rhinorrhoea [Recovered/Resolved]
